FAERS Safety Report 11239072 (Version 5)
Quarter: 2015Q3

REPORT INFORMATION
  Report Type: Report from Study
  Country: CA (occurrence: CA)
  Receive Date: 20150706
  Receipt Date: 20150828
  Transmission Date: 20151125
  Serious: Yes (Hospitalization, Other)
  Sender: FDA-Public Use
  Company Number: CA-ROCHE-1602949

PATIENT
  Age: 71 Year
  Sex: Male

DRUGS (10)
  1. FUROSEMIDE. [Concomitant]
     Active Substance: FUROSEMIDE
  2. ATORVASTATIN [Concomitant]
     Active Substance: ATORVASTATIN
  3. ESBRIET [Suspect]
     Active Substance: PIRFENIDONE
     Indication: IDIOPATHIC PULMONARY FIBROSIS
     Route: 048
     Dates: start: 20150205
  4. ATENOLOL. [Concomitant]
     Active Substance: ATENOLOL
  5. RABEPRAZOLE [Concomitant]
     Active Substance: RABEPRAZOLE
  6. ZOPICLONE [Concomitant]
     Active Substance: ZOPICLONE
  7. ASAPHEN [Concomitant]
     Active Substance: ASPIRIN
  8. DOMPERIDONE [Concomitant]
     Active Substance: DOMPERIDONE
  9. ESBRIET [Suspect]
     Active Substance: PIRFENIDONE
     Route: 048
     Dates: start: 20150219, end: 2015
  10. ESBRIET [Suspect]
     Active Substance: PIRFENIDONE
     Route: 048
     Dates: start: 20150212

REACTIONS (5)
  - Coma [Recovered/Resolved]
  - Gallbladder disorder [Not Recovered/Not Resolved]
  - Ventricular fibrillation [Recovered/Resolved]
  - Rash [Not Recovered/Not Resolved]
  - Infection [Not Recovered/Not Resolved]

NARRATIVE: CASE EVENT DATE: 20150516
